FAERS Safety Report 10608633 (Version 1)
Quarter: 2014Q4

REPORT INFORMATION
  Report Type: Spontaneous
  Country: US (occurrence: US)
  Receive Date: 20141125
  Receipt Date: 20141125
  Transmission Date: 20150529
  Serious: No
  Sender: FDA-Public Use
  Company Number: US-GILEAD-2014-0124166

PATIENT
  Age: 55 Year
  Sex: Female

DRUGS (15)
  1. DALIRESP [Concomitant]
     Active Substance: ROFLUMILAST
  2. MEDROXYPROGESTERONE [Concomitant]
     Active Substance: MEDROXYPROGESTERONE
  3. ZOLOFT [Concomitant]
     Active Substance: SERTRALINE HYDROCHLORIDE
  4. ADVAIR HFA [Concomitant]
     Active Substance: FLUTICASONE PROPIONATE\SALMETEROL XINAFOATE
  5. AMBIEN [Concomitant]
     Active Substance: ZOLPIDEM TARTRATE
  6. LASIX [Concomitant]
     Active Substance: FUROSEMIDE
  7. VESICARE [Concomitant]
     Active Substance: SOLIFENACIN SUCCINATE
  8. SEROQUEL [Concomitant]
     Active Substance: QUETIAPINE FUMARATE
  9. LETAIRIS [Suspect]
     Active Substance: AMBRISENTAN
     Indication: PULMONARY HYPERTENSION
     Dosage: 5 MG, QD
     Route: 065
     Dates: start: 20100827
  10. FUROSEMIDE. [Concomitant]
     Active Substance: FUROSEMIDE
  11. DIGOXIN. [Concomitant]
     Active Substance: DIGOXIN
  12. OMEPRAZOLE. [Concomitant]
     Active Substance: OMEPRAZOLE
  13. ALBUTEROL                          /00139501/ [Concomitant]
     Active Substance: ALBUTEROL
  14. PROVERA [Concomitant]
     Active Substance: MEDROXYPROGESTERONE ACETATE
  15. CLARITIN [Concomitant]
     Active Substance: LORATADINE

REACTIONS (2)
  - Dyspnoea [Not Recovered/Not Resolved]
  - Oxygen consumption increased [Unknown]

NARRATIVE: CASE EVENT DATE: 20140901
